FAERS Safety Report 4449713-6 (Version None)
Quarter: 2004Q3

REPORT INFORMATION
  Report Type: 
  Country: None (occurrence: None)
  Receive Date: 20040913
  Receipt Date: 20030204
  Transmission Date: 20050211
  Serious: Yes (Hospitalization)
  Sender: FDA-Public Use
  Company Number: 2004231686CA

PATIENT
  Age: 59 Year
  Sex: Female

DRUGS (5)
  1. ZYOXAM(LINEZOLID)TABLET [Suspect]
     Indication: URINARY TRACT INFECTION
     Dosage: 600 MG, BID, ORAL
     Route: 048
     Dates: start: 20020128, end: 20020211
  2. VANCOMYCIN [Suspect]
     Dosage: 1 G, DAILY, IV
     Route: 042
     Dates: start: 20020124, end: 20020128
  3. CEPHALEXIN [Suspect]
     Dosage: ORAL
     Route: 048
     Dates: start: 20020113, end: 20020227
  4. CEPHALEXIN [Suspect]
     Dosage: ORAL
     Route: 048
     Dates: start: 20020422, end: 20020430
  5. CIPROFLOXACIN [Suspect]
     Dosage: ORAL
     Route: 048
     Dates: start: 20020412, end: 20020421

REACTIONS (2)
  - HAEMODIALYSIS [None]
  - RENAL FAILURE ACUTE [None]
